FAERS Safety Report 4455700-4 (Version None)
Quarter: 2004Q3

REPORT INFORMATION
  Report Type: 
  Country: None (occurrence: None)
  Receive Date: 20040917
  Receipt Date: 20040908
  Transmission Date: 20050211
  Serious: Yes (Hospitalization)
  Sender: FDA-Public Use
  Company Number: 2004230316JP

PATIENT
  Age: 69 Year
  Sex: Female

DRUGS (2)
  1. EPIRUBICIN [Suspect]
     Indication: BREAST CANCER FEMALE
     Dosage: 120 MG, CYCLE, 1 DAILY, IV
     Route: 042
     Dates: start: 20040301, end: 20040101
  2. CYCLOPHOSPHAMIDE [Suspect]
     Indication: BREAST CANCER FEMALE
     Dosage: 900 MG, CYCLE, 1, DAILY, IV
     Route: 042
     Dates: start: 20040301

REACTIONS (1)
  - INTERSTITIAL LUNG DISEASE [None]
